FAERS Safety Report 9861031 (Version 2)
Quarter: 2014Q1

REPORT INFORMATION
  Report Type: Spontaneous
  Country: SE (occurrence: SE)
  Receive Date: 20140202
  Receipt Date: 20140202
  Transmission Date: 20141002
  Serious: Yes (Other)
  Sender: FDA-Public Use
  Company Number: SE-ALLERGAN-1303091US

PATIENT
  Age: 50 Year
  Sex: Female

DRUGS (1)
  1. VISTABEL [Suspect]
     Indication: SKIN WRINKLING
     Dosage: 24 UNITS, SINGLE
     Dates: start: 201301, end: 201301

REACTIONS (2)
  - Eyelid ptosis [Recovered/Resolved]
  - Injection site haemorrhage [Recovered/Resolved]
